FAERS Safety Report 11356013 (Version 1)
Quarter: 2015Q3

REPORT INFORMATION
  Report Type: Spontaneous
  Country: KR (occurrence: KR)
  Receive Date: 20150807
  Receipt Date: 20150807
  Transmission Date: 20151125
  Serious: Yes (Hospitalization)
  Sender: FDA-Public Use
  Company Number: KR-OTSUKA-2015_006755

PATIENT

DRUGS (50)
  1. CIPROFLOXACIN HYDROCHLORIDE. [Concomitant]
     Active Substance: CIPROFLOXACIN HYDROCHLORIDE
     Dosage: 500 MG, 2 IN
     Route: 048
     Dates: start: 20150109, end: 20150113
  2. COLCHICINE. [Concomitant]
     Active Substance: COLCHICINE
     Indication: PROPHYLAXIS
     Dosage: 1 DOSE(S), 2 IN
     Route: 048
     Dates: start: 20141103, end: 20141215
  3. MEGESTROL ACETATE. [Concomitant]
     Active Substance: MEGESTROL ACETATE
     Indication: DECREASED APPETITE
     Dosage: 1 PA, 2 FREQUENCY
     Route: 048
     Dates: start: 20141216, end: 20141224
  4. FLUCONAL [Concomitant]
     Dosage: 50 MG, 2 IN
     Route: 048
     Dates: start: 20150105, end: 20150111
  5. DACOGEN [Suspect]
     Active Substance: DECITABINE
     Indication: MYELODYSPLASTIC SYNDROME
     Dosage: 20 MG/M2, 1 IN 1 FREQUENCY
     Route: 042
     Dates: start: 20141107, end: 20141111
  6. AMIKACIN [Concomitant]
     Active Substance: AMIKACIN
     Indication: NEUTROPENIC COLITIS
     Dosage: 375 MG, 1 IN
     Route: 042
     Dates: start: 20150114, end: 20150115
  7. CIPROFLOXACIN HYDROCHLORIDE. [Concomitant]
     Active Substance: CIPROFLOXACIN HYDROCHLORIDE
     Indication: C-REACTIVE PROTEIN INCREASED
     Dosage: 500 MG, 2 IN
     Route: 048
     Dates: start: 20141222, end: 20141231
  8. HYDROXYZINE HYDROCHLORIDE. [Concomitant]
     Active Substance: HYDROXYZINE HYDROCHLORIDE
     Indication: SEDATIVE THERAPY
     Dosage: 1 DOSE(S), 3 IN
     Route: 048
     Dates: start: 20141210, end: 20150102
  9. METRONIDAZOL [Concomitant]
     Active Substance: METRONIDAZOLE
     Indication: DIARRHOEA
     Dosage: 500 MG, 3 IN
     Route: 042
     Dates: start: 20150211, end: 20150216
  10. DACOGEN [Suspect]
     Active Substance: DECITABINE
     Dosage: 20 MG/M2, 1 IN
     Route: 042
     Dates: start: 20150410, end: 20150414
  11. DACOGEN [Suspect]
     Active Substance: DECITABINE
     Dosage: 20 MG/M2, 1 IN
     Route: 042
     Dates: start: 20150508, end: 20150512
  12. AMIKACIN SULFATE. [Concomitant]
     Active Substance: AMIKACIN SULFATE
     Indication: C-REACTIVE PROTEIN INCREASED
     Dosage: 375 MG, 2 IN
     Route: 042
     Dates: start: 20141205, end: 20141222
  13. PHYTONADIONE. [Concomitant]
     Active Substance: PHYTONADIONE
     Indication: VITAMIN SUPPLEMENTATION
     Dosage: 1 DOSE(S), 1 IN
     Route: 042
     Dates: start: 20150120, end: 20150120
  14. PROPACETAMOL HYDROCHLORIDE [Concomitant]
     Active Substance: PROPACETAMOL HYDROCHLORIDE
     Indication: DIARRHOEA
     Dosage: 1 DOSE(S), 1 IN
     Route: 048
     Dates: start: 20141231, end: 20150109
  15. ULTRACET [Concomitant]
     Active Substance: ACETAMINOPHEN\TRAMADOL HYDROCHLORIDE
     Dosage: 1 DOSE(S), 1 IN
     Route: 048
     Dates: start: 20150116, end: 20150116
  16. URSODEOXYCHOLIC ACID [Concomitant]
     Active Substance: URSODIOL
     Indication: PROPHYLAXIS
     Dosage: 1 DOSE(S), 3 IN
     Route: 048
     Dates: end: 20141118
  17. ZOLPIDEM TARTRATE. [Concomitant]
     Active Substance: ZOLPIDEM TARTRATE
     Indication: SLEEP DISORDER THERAPY
     Dosage: 1 DOSE(S), 1 IN
     Route: 048
     Dates: start: 20150119, end: 20150120
  18. DACOGEN [Suspect]
     Active Substance: DECITABINE
     Dosage: 20 MG/M2, 1 IN
     Route: 042
     Dates: start: 20150203, end: 20150207
  19. DACOGEN [Suspect]
     Active Substance: DECITABINE
     Dosage: 20 MG/M2, 1 IN
     Route: 042
     Dates: start: 20150311, end: 20150315
  20. ACETAMINOPHEN. [Concomitant]
     Active Substance: ACETAMINOPHEN
     Dosage: 1 DOSE(S), 1 IN
     Route: 048
  21. AMIKACIN SULFATE. [Concomitant]
     Active Substance: AMIKACIN SULFATE
     Indication: NEUTROPENIC COLITIS
     Dosage: 375 MG, 1 IN
     Route: 042
     Dates: start: 20150114, end: 20150115
  22. METRONIDAZOL [Concomitant]
     Active Substance: METRONIDAZOLE
     Indication: NEUTROPENIC COLITIS
     Dosage: 500 MG, 3 IN
     Route: 042
     Dates: start: 20141231, end: 20150108
  23. FLUCONAL [Concomitant]
     Dosage: 50 MG, 2 IN
     Route: 048
     Dates: start: 20141218, end: 20150102
  24. DACOGEN [Suspect]
     Active Substance: DECITABINE
     Dosage: 20 MG/M2, 1 IN
     Route: 042
     Dates: start: 20141215, end: 20141219
  25. ACETAMINOPHEN. [Concomitant]
     Active Substance: ACETAMINOPHEN
     Dosage: 1 DOSE(S), 1 IN
     Route: 048
     Dates: start: 20150114, end: 20150116
  26. ACETAMINOPHEN. [Concomitant]
     Active Substance: ACETAMINOPHEN
     Dosage: 1 DOSE(S), 1 IN
     Route: 048
     Dates: start: 20150206, end: 20150207
  27. ASPIRIN. [Concomitant]
     Active Substance: ASPIRIN
     Indication: ARTHRITIS REACTIVE
     Dosage: 1 DOSE(S), 1 IN
     Route: 048
     Dates: end: 20141118
  28. ASPIRIN. [Concomitant]
     Active Substance: ASPIRIN
     Dosage: 1 DOSE(S), 1 IN
     Route: 048
     Dates: start: 20150115
  29. BISOPROLOL HEMIFUMARATE [Concomitant]
     Active Substance: BISOPROLOL FUMARATE
     Indication: HYPERTENSION
     Dosage: 0.5 DOSE(S), 1 IN
     Route: 048
  30. CIPROFLOXACIN HYDROCHLORIDE. [Concomitant]
     Active Substance: CIPROFLOXACIN HYDROCHLORIDE
     Dosage: 500 MG, 2 IN
     Route: 048
     Dates: start: 20150119, end: 20150130
  31. FLAVINE ADENINE DINUCLEOTIDE [Concomitant]
     Indication: PROPHYLAXIS
     Dosage: 2 DOSE(S), 1 IN
     Route: 042
     Dates: start: 20150114, end: 20150115
  32. MEGESTROL ACETATE. [Concomitant]
     Active Substance: MEGESTROL ACETATE
     Dosage: 10 ML, UNK
     Route: 048
     Dates: start: 20150213, end: 20150215
  33. ULTRACET [Concomitant]
     Active Substance: ACETAMINOPHEN\TRAMADOL HYDROCHLORIDE
     Dosage: 1 DOSE(S), 2 IN
     Route: 048
     Dates: start: 20141213, end: 20150114
  34. ZOVIRAX [Concomitant]
     Active Substance: ACYCLOVIR
     Indication: ANTIVIRAL PROPHYLAXIS
     Dosage: 400 MG, 3 IN
     Route: 048
     Dates: start: 20141209, end: 20150104
  35. ACETAMINOPHEN. [Concomitant]
     Active Substance: ACETAMINOPHEN
     Indication: ARTHRITIS REACTIVE
     Dosage: 1 DOSE(S), 1 IN
     Route: 048
     Dates: start: 20150103, end: 20150103
  36. ACETYLCYSTEINE. [Concomitant]
     Active Substance: ACETYLCYSTEINE
     Indication: COUGH
     Dosage: 1 DOSE(S), 3 IN
     Route: 048
     Dates: start: 20141206, end: 20141220
  37. AMIKACIN SULFATE. [Concomitant]
     Active Substance: AMIKACIN SULFATE
     Dosage: 375 MG, 2 IN
     Route: 042
     Dates: start: 20150116, end: 20150119
  38. CEFEPIME HYDROCHLORIDE. [Concomitant]
     Active Substance: CEFEPIME HYDROCHLORIDE
     Indication: NEUTROPENIC COLITIS
     Dosage: 2 DOSE(S), 2 IN
     Route: 042
     Dates: start: 20141231, end: 20150108
  39. CEFEPIME HYDROCHLORIDE. [Concomitant]
     Active Substance: CEFEPIME HYDROCHLORIDE
     Indication: DIARRHOEA
     Dosage: 2 DOSE(S), 2 IN
     Route: 042
     Dates: start: 20150114, end: 20150119
  40. CEFEPIME HYDROCHLORIDE. [Concomitant]
     Active Substance: CEFEPIME HYDROCHLORIDE
     Dosage: 2 DOSE(S), 3 IN
     Route: 042
     Dates: start: 20140211, end: 20150216
  41. CHOLINE ALFOSCERATE [Concomitant]
     Active Substance: CHOLINE ALFOSCERATE
     Indication: PROPHYLAXIS
     Dosage: 1 DOSE(S), 3 IN
     Route: 048
     Dates: start: 20150115
  42. FLUCONAL [Concomitant]
     Indication: ANTIFUNGAL PROPHYLAXIS
     Dosage: 50 MG, 2 IN
     Route: 048
     Dates: start: 20141109, end: 20141205
  43. AMIKACIN SULFATE. [Concomitant]
     Active Substance: AMIKACIN SULFATE
     Indication: PYREXIA
     Dosage: 375 MG, 1 IN
     Route: 042
     Dates: start: 20150101, end: 20150108
  44. HERBAL NOS [Concomitant]
     Active Substance: HERBALS
     Indication: GASTRITIS
     Dosage: 1 DOSE(S), 3 IN
     Route: 048
     Dates: end: 20150102
  45. CEFEPIME HYDROCHLORIDE. [Concomitant]
     Active Substance: CEFEPIME HYDROCHLORIDE
     Indication: PYREXIA
     Dosage: 2 DOSE(S), 2 IN
     Route: 042
     Dates: start: 20141205, end: 20141222
  46. CHOLINE ALFOSCERATE [Concomitant]
     Active Substance: CHOLINE ALFOSCERATE
     Dosage: 1 DOSE(S), 3 IN
     Route: 048
     Dates: end: 20150202
  47. FLUCONAL [Concomitant]
     Dosage: 50 MG, 2 IN
     Route: 048
     Dates: start: 20150115, end: 20150130
  48. ATORVASTATIN CALCIUM. [Concomitant]
     Active Substance: ATORVASTATIN CALCIUM
     Indication: HYPERTENSION
     Dosage: 1 DOSE(S), 1 IN
     Route: 048
  49. CEFEPIME HYDROCHLORIDE. [Concomitant]
     Active Substance: CEFEPIME HYDROCHLORIDE
     Dosage: 1 DOSE(S), 3 IN
     Route: 042
     Dates: start: 20150211, end: 20150216
  50. ULTRACET [Concomitant]
     Active Substance: ACETAMINOPHEN\TRAMADOL HYDROCHLORIDE
     Indication: ARTHRITIS REACTIVE
     Dosage: 1 DOSE(S), 3 IN
     Route: 048
     Dates: start: 20141127, end: 20141212

REACTIONS (3)
  - Neutropenic colitis [Recovered/Resolved]
  - C-reactive protein increased [Recovered/Resolved]
  - Diarrhoea [Recovered/Resolved]

NARRATIVE: CASE EVENT DATE: 20141205
